FAERS Safety Report 11195346 (Version 1)
Quarter: 2015Q2

REPORT INFORMATION
  Report Type: Spontaneous
  Country: GB (occurrence: GB)
  Receive Date: 20150617
  Receipt Date: 20150617
  Transmission Date: 20150821
  Serious: Yes (Hospitalization)
  Sender: FDA-Public Use
  Company Number: GB-AUROBINDO-AUR-APL-2015-05144

PATIENT
  Age: 81 Year
  Sex: Male

DRUGS (1)
  1. LAMOTRIGINE TABLET [Suspect]
     Active Substance: LAMOTRIGINE
     Indication: DEMENTIA
     Dosage: 75 MG, TWO TIMES A DAY
     Route: 065

REACTIONS (2)
  - Off label use [Unknown]
  - Mental disorder [Not Recovered/Not Resolved]
